FAERS Safety Report 6853015-8 (Version None)
Quarter: 2010Q3

REPORT INFORMATION
  Report Type: 
  Country: None (occurrence: None)
  Receive Date: 20100717
  Receipt Date: 20071127
  Transmission Date: 20110219
  Serious: Yes (Other)
  Sender: FDA-Public Use
  Company Number: US-PFIZER INC-2007101554

PATIENT
  Sex: Male
  Weight: 106.81 kg

DRUGS (4)
  1. CHANTIX [Suspect]
     Indication: SMOKING CESSATION THERAPY
     Dates: start: 20071001
  2. SULAR [Suspect]
     Indication: HYPERTENSION
     Dates: start: 20070101
  3. BENICAR [Suspect]
     Indication: HYPERTENSION
     Dates: start: 20060101
  4. NAPRELAN [Concomitant]
     Indication: BACK PAIN

REACTIONS (5)
  - DIZZINESS [None]
  - HEADACHE [None]
  - HYPOTENSION [None]
  - NAUSEA [None]
  - PARAESTHESIA [None]
